FAERS Safety Report 17523784 (Version 1)
Quarter: 2020Q1

REPORT INFORMATION
  Report Type: Spontaneous
  Country: CN (occurrence: CN)
  Receive Date: 20200311
  Receipt Date: 20200311
  Transmission Date: 20200409
  Serious: Yes (Other)
  Sender: FDA-Public Use
  Company Number: CN-ROCHE-2564270

PATIENT
  Age: 72 Year
  Sex: Male

DRUGS (4)
  1. PEMETREXED. [Concomitant]
     Active Substance: PEMETREXED
     Indication: LUNG ADENOCARCINOMA
     Route: 065
     Dates: start: 20190702
  2. PEMETREXED. [Concomitant]
     Active Substance: PEMETREXED
     Route: 041
     Dates: start: 20191108
  3. CARBOPLATIN. [Concomitant]
     Active Substance: CARBOPLATIN
     Indication: LUNG ADENOCARCINOMA
     Route: 065
     Dates: start: 20190702
  4. AVASTIN [Suspect]
     Active Substance: BEVACIZUMAB
     Indication: LUNG ADENOCARCINOMA
     Route: 065
     Dates: start: 20190702

REACTIONS (8)
  - Abdominal discomfort [Unknown]
  - Haematochezia [Unknown]
  - Cardiac failure [Unknown]
  - Radiation pneumonitis [Unknown]
  - Fall [Unknown]
  - Bone marrow failure [Unknown]
  - Muscular weakness [Unknown]
  - Nausea [Unknown]
